FAERS Safety Report 6997224-6 (Version None)
Quarter: 2010Q3

REPORT INFORMATION
  Report Type: 
  Country: None (occurrence: None)
  Receive Date: 20100918
  Receipt Date: 20090925
  Transmission Date: 20110219
  Serious: No
  Sender: FDA-Public Use
  Company Number: US-WYE-H11222709

PATIENT
  Sex: Female

DRUGS (6)
  1. PRISTIQ [Suspect]
     Indication: DEPRESSION
     Route: 048
     Dates: start: 20090818, end: 20090825
  2. PRISTIQ [Suspect]
     Route: 048
     Dates: start: 20090826, end: 20090921
  3. PRISTIQ [Suspect]
     Route: 048
     Dates: start: 20090922
  4. VERAPAMIL [Concomitant]
  5. ALDACTONE [Concomitant]
  6. LEVOTHYROXINE [Concomitant]

REACTIONS (7)
  - AFFECT LABILITY [None]
  - CONDITION AGGRAVATED [None]
  - CRYING [None]
  - DEPRESSION [None]
  - DRUG INEFFECTIVE [None]
  - HUNGER [None]
  - WEIGHT INCREASED [None]
